FAERS Safety Report 7530254-4 (Version None)
Quarter: 2011Q2

REPORT INFORMATION
  Report Type: 
  Country: None (occurrence: None)
  Receive Date: 20110606
  Receipt Date: 20110606
  Transmission Date: 20111010
  Serious: Yes (Other)
  Sender: FDA-Public Use
  Company Number: None

PATIENT
  Sex: Female
  Weight: 78.0187 kg

DRUGS (1)
  1. ULORIC [Suspect]
     Indication: BLOOD URIC ACID INCREASED
     Dosage: 40 MGM ONCE DAILY
     Dates: start: 20110522

REACTIONS (5)
  - ASTHENIA [None]
  - HEADACHE [None]
  - NAUSEA [None]
  - VOMITING [None]
  - DIARRHOEA [None]
